FAERS Safety Report 7342207-X (Version None)
Quarter: 2011Q1

REPORT INFORMATION
  Report Type: 
  Country: None (occurrence: None)
  Receive Date: 20110310
  Receipt Date: 20110301
  Transmission Date: 20110831
  Serious: Yes (Other)
  Sender: FDA-Public Use
  Company Number: BR-AMGEN-BRASP2010008527

PATIENT
  Age: 68 Year
  Sex: Male
  Weight: 65 kg

DRUGS (15)
  1. CYCLOSPORINE [Concomitant]
     Indication: RHEUMATOID ARTHRITIS
     Dosage: 5 TABLETS PER DAY
     Dates: start: 20100601
  2. PURAN T4 [Concomitant]
     Indication: THYROID DISORDER
     Dosage: UNK
     Dates: start: 20070101
  3. ASPIRIN [Concomitant]
     Indication: THROMBOSIS PROPHYLAXIS
     Dosage: 100 MG, QD
     Dates: start: 20080101
  4. SIMVASTATIN [Concomitant]
     Indication: BLOOD CHOLESTEROL
     Dosage: 40 MG, UNK
     Dates: start: 20070101
  5. LAMIVUDINE [Concomitant]
     Indication: LIVER DISORDER
  6. PURAN T4 [Concomitant]
     Indication: HYPOTHYROIDISM
  7. OMEPRAZOL                          /00661201/ [Concomitant]
     Indication: GASTRIC DISORDER
     Dosage: UNK
  8. ENBREL [Suspect]
     Indication: RHEUMATOID ARTHRITIS
     Dosage: 50 MG, QWK
     Route: 058
     Dates: start: 20100614
  9. LAMIVUDINE [Concomitant]
     Indication: ANTIVIRAL PROPHYLAXIS
     Dosage: UNK
     Dates: start: 20100607
  10. SIMVASTATIN [Concomitant]
     Dosage: 20 MG, UNK
     Dates: start: 20080101
  11. ISOPHANE INSULIN [Concomitant]
     Indication: TYPE 2 DIABETES MELLITUS
     Dosage: 28 UNITS TWICE DAILY
     Dates: start: 19970101
  12. ENALAPRIL MALEATE [Concomitant]
     Indication: BLOOD PRESSURE INCREASED
     Dosage: 10 MG, UNK
     Dates: start: 20070101
  13. ISOPHANE INSULIN [Concomitant]
     Dosage: 28 UNITS TWICE DAILY
     Dates: start: 19990101
  14. NAPRIX D [Concomitant]
     Dosage: UNK
  15. OMEPRAZOLE [Concomitant]
     Indication: GASTRIC DISORDER

REACTIONS (6)
  - BLOOD UREA INCREASED [None]
  - RED BLOOD CELL SEDIMENTATION RATE INCREASED [None]
  - BLOOD CREATININE INCREASED [None]
  - ANAEMIA [None]
  - NERVE COMPRESSION [None]
  - WEIGHT DECREASED [None]
